FAERS Safety Report 11416462 (Version 4)
Quarter: 2017Q1

REPORT INFORMATION
  Report Type: Spontaneous
  Country: US (occurrence: US)
  Receive Date: 20150825
  Receipt Date: 20170221
  Transmission Date: 20170428
  Serious: Yes (Other)
  Sender: FDA-Public Use
  Company Number: US-PFIZER INC-2015279014

PATIENT
  Age: 58 Year
  Sex: Female

DRUGS (24)
  1. ZANAFLEX [Concomitant]
     Active Substance: TIZANIDINE HYDROCHLORIDE
     Dosage: 4 MG, 3X/DAY
     Dates: start: 20170113
  2. LANTUS [Concomitant]
     Active Substance: INSULIN GLARGINE
     Dosage: 40 IU, 1X/DAY (AT BEDTIME)
  3. LYRICA [Suspect]
     Active Substance: PREGABALIN
     Dosage: 100 MG, 3X/DAY
     Route: 048
     Dates: start: 20170110
  4. AURALGAN [Concomitant]
     Indication: EAR PAIN
     Dosage: UNK, AS NEEDED (5.4-14%; ADMINISTER 3 DROPS INTO THE LEFT EAR EVERY 2 (TWO HOURS)
     Dates: start: 20170202
  5. VITAMIN B-COMPLEX [Concomitant]
     Active Substance: DEXPANTHENOL\NIACINAMIDE\PYRIDOXINE HYDROCHLORIDE\RIBOFLAVIN 5^-PHOSPHATE SODIUM\THIAMINE HYDROCHLORIDE
     Dosage: UNK
     Dates: start: 20160605
  6. GLUCOTROL [Concomitant]
     Active Substance: GLIPIZIDE
     Dosage: 10 MG, DAILY
     Route: 048
     Dates: start: 20170113
  7. MAGNESIUM OXIDE -MG SUPPLEMENT [Concomitant]
     Dosage: 400 MG, UNK
     Dates: start: 20160711
  8. NEOMYCIN-BACITRACIN-POLYMYXIN [Concomitant]
     Dosage: UNK
     Dates: start: 20160803
  9. DESYREL [Concomitant]
     Active Substance: TRAZODONE HYDROCHLORIDE
     Dosage: 100 MG, 1X/DAY (EVERY NIGHT)
     Route: 048
     Dates: start: 20161221
  10. EFFEXOR [Concomitant]
     Active Substance: VENLAFAXINE HYDROCHLORIDE
     Dosage: 75 MG, DAILY
     Dates: start: 20160930
  11. CINNAMON. [Concomitant]
     Active Substance: CINNAMON
     Dosage: 2 DF, 1X/DAY
  12. DILAUDID [Concomitant]
     Active Substance: HYDROMORPHONE HYDROCHLORIDE
     Indication: PAIN
     Dosage: 4 MG, AS NEEDED (EVERY 4 (FOUR) HOURS)
     Route: 048
     Dates: start: 20170110
  13. NOVOLIN [Concomitant]
     Active Substance: INSULIN HUMAN
     Dosage: UNK ([INSULIN ISOPHANE HUMAN: 70%/INSULIN REGULAR HUMAN: 30%])
     Dates: start: 20160520
  14. PRINIVIL [Concomitant]
     Active Substance: LISINOPRIL
     Dosage: 40 MG, DAILY
     Route: 048
     Dates: start: 20170113
  15. ZESTRIL [Concomitant]
     Active Substance: LISINOPRIL
     Dosage: 40 MG, DAILY
     Route: 048
     Dates: start: 20170113
  16. PHENERGAN [Concomitant]
     Active Substance: PROMETHAZINE HYDROCHLORIDE
     Dosage: 25 MG, AS NEEDED
     Route: 048
     Dates: start: 20160913
  17. ZANTAC [Concomitant]
     Active Substance: RANITIDINE HYDROCHLORIDE
     Dosage: 150 MG, 2X/DAY
     Route: 048
     Dates: start: 20170113
  18. ALDACTONE [Concomitant]
     Active Substance: SPIRONOLACTONE
     Dosage: 25 MG, UNK
     Dates: start: 20160508
  19. OMNICEF [Concomitant]
     Active Substance: CEFDINIR
     Dosage: 300 MG, 2X/DAY
     Route: 048
     Dates: start: 20170201
  20. DURAGESIC [Concomitant]
     Active Substance: FENTANYL
     Dosage: UNK (25 MCG/HR; PLACE 1 PATCH ON THE SKIN EVERY 72 (SEVENTY TWO) HOURS)
     Route: 062
     Dates: start: 20170110
  21. ALPHA LIPOIC ACID [Concomitant]
     Active Substance: .ALPHA.-LIPOIC ACID
     Dosage: UNK, 1X/DAY
  22. LYRICA [Suspect]
     Active Substance: PREGABALIN
     Indication: DIABETIC NEUROPATHY
     Dosage: UNK
  23. FLONASE [Concomitant]
     Active Substance: FLUTICASONE PROPIONATE
     Dosage: UNK, DAILY (50 MCG/ACT; 2 SPRAYS INTO EACH NOSTRIL)
     Route: 045
     Dates: start: 20170113
  24. CALCIUM WITH VITAMIN D [Concomitant]
     Active Substance: CALCIUM\VITAMIN D
     Dosage: UNK, 1X/DAY

REACTIONS (5)
  - Wrist fracture [Unknown]
  - Fall [Unknown]
  - Pain in extremity [Unknown]
  - Burning sensation [Unknown]
  - Gait disturbance [Unknown]
